FAERS Safety Report 22984404 (Version 2)
Quarter: 2023Q4

REPORT INFORMATION
  Report Type: Spontaneous
  Country: FR (occurrence: FR)
  Receive Date: 20230926
  Receipt Date: 20231006
  Transmission Date: 20240110
  Serious: Yes (Other)
  Sender: FDA-Public Use
  Company Number: None

PATIENT
  Age: 48 Year
  Sex: Female
  Weight: 73 kg

DRUGS (2)
  1. PROLIA [Suspect]
     Active Substance: DENOSUMAB
     Indication: Bone loss
     Dosage: 60 MILLIGRAM (1 DF), Q6MO
     Route: 040
     Dates: start: 202210
  2. ENHERTU [Suspect]
     Active Substance: FAM-TRASTUZUMAB DERUXTECAN-NXKI
     Indication: Breast cancer metastatic
     Dosage: 100 MILLIGRAM (1 DOSAGE FORM), CYCLICAL (C14)
     Route: 040
     Dates: start: 202207, end: 20230515

REACTIONS (2)
  - Interstitial lung disease [Recovering/Resolving]
  - Chorioretinitis [Recovering/Resolving]

NARRATIVE: CASE EVENT DATE: 20230101
